FAERS Safety Report 7320683-6 (Version None)
Quarter: 2011Q1

REPORT INFORMATION
  Report Type: 
  Country: None (occurrence: None)
  Receive Date: 20110228
  Receipt Date: 20110215
  Transmission Date: 20110831
  Serious: Yes (Hospitalization, Other)
  Sender: FDA-Public Use
  Company Number: US-ROCHE-735754

PATIENT
  Sex: Male
  Weight: 95.3 kg

DRUGS (2)
  1. ACCUTANE [Suspect]
     Indication: ACNE
     Route: 065
     Dates: start: 19910701, end: 19911201
  2. ACCUTANE [Suspect]
     Route: 065
     Dates: start: 19930101, end: 19940101

REACTIONS (9)
  - CHOLANGITIS [None]
  - INFLAMMATORY BOWEL DISEASE [None]
  - CROHN'S DISEASE [None]
  - HEPATIC ENZYME INCREASED [None]
  - ANAL FISTULA [None]
  - PERIRECTAL ABSCESS [None]
  - GASTROINTESTINAL INJURY [None]
  - LIVER ABSCESS [None]
  - INTESTINAL PERFORATION [None]
